FAERS Safety Report 4669772-5 (Version None)
Quarter: 2005Q2

REPORT INFORMATION
  Report Type: 
  Country: None (occurrence: None)
  Receive Date: 20050520
  Receipt Date: 20050502
  Transmission Date: 20051028
  Serious: Yes (Hospitalization)
  Sender: FDA-Public Use
  Company Number: US_0505117424

PATIENT
  Sex: Female
  Weight: 48 kg

DRUGS (14)
  1. FORTEO [Suspect]
     Indication: OSTEOPOROSIS
     Dosage: 20 UG DAY
     Dates: start: 20041229, end: 20050226
  2. STRATTERA [Concomitant]
  3. VIVELLE [Concomitant]
  4. ADVAIR DISKUS 100/50 [Concomitant]
  5. SALAGEN [Concomitant]
  6. NEXIUM [Concomitant]
  7. CLARITIN [Concomitant]
  8. ATACAND [Concomitant]
  9. DILTIAZEM [Concomitant]
  10. NEURONTIN (GABAPENTIN PFIZER) [Concomitant]
  11. EFFEXOR [Concomitant]
  12. LEVOXYL [Concomitant]
  13. MOBIC [Concomitant]
  14. IMIPRAMINE [Concomitant]

REACTIONS (10)
  - ABDOMINAL PAIN UPPER [None]
  - ACUTE MYOCARDIAL INFARCTION [None]
  - ANGINA PECTORIS [None]
  - BLOOD PRESSURE SYSTOLIC DECREASED [None]
  - DEPRESSED LEVEL OF CONSCIOUSNESS [None]
  - DRUG INEFFECTIVE [None]
  - FATIGUE [None]
  - HEADACHE [None]
  - MIGRAINE WITHOUT AURA [None]
  - SYNCOPE [None]
